FAERS Safety Report 9383922 (Version 1)
Quarter: 2013Q3

REPORT INFORMATION
  Report Type: Spontaneous
  Country: US (occurrence: US)
  Receive Date: 20130705
  Receipt Date: 20130705
  Transmission Date: 20140515
  Serious: Yes (Other)
  Sender: FDA-Public Use
  Company Number: US-ASTRAZENECA-2013SE50002

PATIENT
  Age: 69 Year
  Sex: Female

DRUGS (1)
  1. LISINOPRIL [Suspect]
     Route: 065

REACTIONS (2)
  - Cerebrovascular accident [Unknown]
  - Hypertension [Unknown]
